FAERS Safety Report 12675274 (Version 2)
Quarter: 2016Q3

REPORT INFORMATION
  Report Type: Spontaneous
  Country: JP (occurrence: JP)
  Receive Date: 20160823
  Receipt Date: 20160921
  Transmission Date: 20161109
  Serious: Yes (Death, Hospitalization)
  Sender: FDA-Public Use
  Company Number: JP-TAKEDA-2016TJP017600

PATIENT
  Age: 90 Year
  Sex: Female
  Weight: 41 kg

DRUGS (4)
  1. NESINA [Suspect]
     Active Substance: ALOGLIPTIN BENZOATE
     Indication: BLOOD GLUCOSE ABNORMAL
  2. EUGLUCON [Suspect]
     Active Substance: GLYBURIDE
     Dosage: 2.5 MG, UNK
     Route: 048
     Dates: start: 20150327, end: 20160113
  3. NESINA [Suspect]
     Active Substance: ALOGLIPTIN BENZOATE
     Indication: GLYCOSYLATED HAEMOGLOBIN INCREASED
     Dosage: 25 MG, UNK
     Route: 048
     Dates: start: 201501, end: 20160113
  4. EUGLUCON [Suspect]
     Active Substance: GLYBURIDE
     Indication: PRODUCT USED FOR UNKNOWN INDICATION
     Dosage: 1.25 MG, UNK
     Route: 048
     Dates: start: 201005, end: 201501

REACTIONS (3)
  - Hypoglycaemia [Recovered/Resolved]
  - General physical health deterioration [Fatal]
  - Marasmus [Fatal]

NARRATIVE: CASE EVENT DATE: 20160113
